FAERS Safety Report 13956467 (Version 2)
Quarter: 2017Q4

REPORT INFORMATION
  Report Type: Spontaneous
  Country: JP (occurrence: JP)
  Receive Date: 20170911
  Receipt Date: 20171025
  Transmission Date: 20180320
  Serious: Yes (Hospitalization)
  Sender: FDA-Public Use
  Company Number: JP-PFIZER INC-2017384583

PATIENT
  Age: 82 Year
  Sex: Male

DRUGS (5)
  1. THYRADIN S [Concomitant]
     Active Substance: LEVOTHYROXINE SODIUM
     Dosage: 50 UG, 1X/DAY
     Route: 048
  2. NAFTOPIDIL OD [Concomitant]
     Dosage: 25 MG, 1X/DAY
     Route: 048
  3. INLYTA [Suspect]
     Active Substance: AXITINIB
     Indication: RENAL CANCER METASTATIC
     Dosage: 5 MG, 2X/DAY
     Route: 048
     Dates: start: 20170710, end: 20170827
  4. HOCHUEKKITO [Concomitant]
     Active Substance: HERBALS
     Dosage: 2.5 G, 3X/DAY
     Route: 048
  5. FUROSEMIDE. [Concomitant]
     Active Substance: FUROSEMIDE
     Dosage: 20 MG, 1X/DAY
     Route: 048

REACTIONS (1)
  - Hypertensive encephalopathy [Recovering/Resolving]

NARRATIVE: CASE EVENT DATE: 201708
